FAERS Safety Report 13696185 (Version 3)
Quarter: 2018Q3

REPORT INFORMATION
  Report Type: Spontaneous
  Country: US (occurrence: US)
  Receive Date: 20170628
  Receipt Date: 20180723
  Transmission Date: 20181010
  Serious: No
  Sender: FDA-Public Use
  Company Number: US-BIOGEN-2017BI00418605

PATIENT
  Age: 30 Year
  Sex: Female

DRUGS (1)
  1. TYSABRI [Suspect]
     Active Substance: NATALIZUMAB
     Indication: MULTIPLE SCLEROSIS
     Route: 042
     Dates: start: 20170418, end: 20170613

REACTIONS (7)
  - Dysstasia [Unknown]
  - Syncope [Recovered/Resolved]
  - Back pain [Unknown]
  - Hypersensitivity [Recovered/Resolved]
  - Flushing [Unknown]
  - Muscle spasms [Recovered/Resolved]
  - Agitation [Unknown]

NARRATIVE: CASE EVENT DATE: 20170516
